FAERS Safety Report 4369814-0 (Version None)
Quarter: 2004Q2

REPORT INFORMATION
  Report Type: 
  Country: None (occurrence: None)
  Receive Date: 20040527
  Receipt Date: 20040517
  Transmission Date: 20050107
  Serious: Yes (Hospitalization)
  Sender: FDA-Public Use
  Company Number: PROG00204001397

PATIENT
  Age: 46 Year
  Sex: Female

DRUGS (7)
  1. PROGESTERONE [Suspect]
     Indication: MENORRHAGIA
     Dosage: SEE IMAGE
     Route: 048
     Dates: start: 20021201, end: 20030601
  2. PROGESTERONE [Suspect]
     Indication: MENORRHAGIA
     Dosage: SEE IMAGE
     Route: 048
     Dates: start: 20030601, end: 20040129
  3. P02578 (EZETIMIBE/SIMVASTATIN) (SIMVASTATIN) [Concomitant]
  4. CORGARD [Concomitant]
  5. LANSOPRAZOLE [Concomitant]
  6. PAXIL [Concomitant]
  7. NEURONTIN [Concomitant]

REACTIONS (7)
  - ANAL FISSURE [None]
  - DIVERTICULUM [None]
  - GASTROOESOPHAGEAL REFLUX DISEASE [None]
  - HAEMORRHOIDS [None]
  - HEPATIC STEATOSIS [None]
  - HIATUS HERNIA [None]
  - IRON DEFICIENCY ANAEMIA [None]
